FAERS Safety Report 8205526-0 (Version None)
Quarter: 2012Q1

REPORT INFORMATION
  Report Type: 
  Country: None (occurrence: None)
  Receive Date: 20120313
  Receipt Date: 20120125
  Transmission Date: 20120608
  Serious: Yes (Other)
  Sender: FDA-Public Use
  Company Number: PHHY2012KR007900

PATIENT
  Sex: Female
  Weight: 50 kg

DRUGS (3)
  1. EXJADE [Suspect]
     Indication: IRON OVERLOAD
     Dosage: 1000 MG, UNK
     Route: 048
     Dates: start: 20070928
  2. PYRIDOXINE HCL [Concomitant]
  3. STEROIDS NOS [Concomitant]

REACTIONS (1)
  - OSTEOPOROSIS [None]
